FAERS Safety Report 8195428-0 (Version None)
Quarter: 2012Q1

REPORT INFORMATION
  Report Type: 
  Country: None (occurrence: None)
  Receive Date: 20120308
  Receipt Date: 20120302
  Transmission Date: 20120608
  Serious: Yes (Disabling, Other)
  Sender: FDA-Public Use
  Company Number: PHHY2012CA018086

PATIENT
  Age: 78 Year
  Sex: Female

DRUGS (6)
  1. PLENDIL [Concomitant]
     Dosage: 5 MG, UNK
  2. ASPIRIN [Concomitant]
     Dosage: 81 MG, UNK
  3. CILAZAPRIL [Concomitant]
     Dosage: 5 MG, UNK
  4. LIPITOR [Concomitant]
     Dosage: 20 MG, UNK
  5. PREVACID [Concomitant]
     Dosage: 30 MG, UNK
  6. ZOLEDRONOC ACID [Suspect]
     Dosage: 5 MG, UNK
     Route: 042
     Dates: start: 20110101

REACTIONS (13)
  - RED BLOOD CELL SEDIMENTATION RATE INCREASED [None]
  - MYALGIA [None]
  - HEADACHE [None]
  - ARTHRALGIA [None]
  - DIZZINESS [None]
  - HAEMOGLOBIN ABNORMAL [None]
  - RASH MACULAR [None]
  - BLOOD CREATINE INCREASED [None]
  - DIARRHOEA [None]
  - PYREXIA [None]
  - GLOMERULAR FILTRATION RATE DECREASED [None]
  - ASTHENIA [None]
  - VOMITING [None]
